FAERS Safety Report 8185532-5 (Version None)
Quarter: 2012Q1

REPORT INFORMATION
  Report Type: 
  Country: None (occurrence: None)
  Receive Date: 20120305
  Receipt Date: 20120224
  Transmission Date: 20120608
  Serious: Yes (Death, Life-Threatening)
  Sender: FDA-Public Use
  Company Number: JP-SANOFI-AVENTIS-2012SA011762

PATIENT
  Age: 81 Year
  Sex: Male

DRUGS (1)
  1. TAXOTERE [Suspect]
     Indication: PROSTATE CANCER
     Route: 065
     Dates: start: 20111201, end: 20120201

REACTIONS (1)
  - INTERSTITIAL LUNG DISEASE [None]
